FAERS Safety Report 6243450-3 (Version None)
Quarter: 2009Q2

REPORT INFORMATION
  Report Type: 
  Country: None (occurrence: None)
  Receive Date: 20090618
  Receipt Date: 20090326
  Transmission Date: 20091009
  Serious: Yes (Hospitalization, Disabling)
  Sender: FDA-Public Use
  Company Number: CIP09000785

PATIENT
  Age: 55 Year
  Sex: Female
  Weight: 102.9 kg

DRUGS (20)
  1. ACTONEL [Suspect]
     Indication: OSTEOPENIA
     Dosage: 150 MG ONE DOSE ONLY, ORAL
     Route: 048
     Dates: start: 20090305, end: 20090305
  2. RELAFEN [Concomitant]
  3. GLUCOPHAGE /00082701/ (METFORMIN) [Concomitant]
  4. TESSALON [Concomitant]
  5. LOTENSIN /00498401/ (CAPTOPRIL) [Concomitant]
  6. LASIX [Concomitant]
  7. NORVASC /00972401/ (AMLODIPINE) [Concomitant]
  8. ALLEGRA /01314201/ (FEXOFENADINE) [Concomitant]
  9. GLUCOTROL [Concomitant]
  10. ASPIRIN [Concomitant]
  11. NIASPAN [Concomitant]
  12. POTASSIUM (POTASSIUM) [Concomitant]
  13. ACIDOPHILUS (LACTOBACILLUS ACIDOPHILUS) [Concomitant]
  14. VITAMIN E /00110501/ (TOCOPHEROL) [Concomitant]
  15. IRON (IRON) [Concomitant]
  16. BLACK COHOSH /01456805/ (CIMICIFUGA RACEMOSA ROOT) [Concomitant]
  17. GARLIC /01570501/ (ALLIUM SATIVUM) [Concomitant]
  18. OMEGA 3 /00931501/ (DOCOSAHEXANOIC ACID, EICOSAPENTAENOIC ACID) [Concomitant]
  19. CO Q-10 (UBIDECARENONE) [Concomitant]
  20. LECITHIN (LECITHIN) [Concomitant]

REACTIONS (6)
  - ABASIA [None]
  - ARTHRALGIA [None]
  - COCCYDYNIA [None]
  - DYSPEPSIA [None]
  - MOBILITY DECREASED [None]
  - NECK PAIN [None]
